FAERS Safety Report 6849998-2 (Version None)
Quarter: 2010Q3

REPORT INFORMATION
  Report Type: 
  Country: None (occurrence: None)
  Receive Date: 20100716
  Receipt Date: 20071201
  Transmission Date: 20110219
  Serious: No
  Sender: FDA-Public Use
  Company Number: US-PFIZER INC-2007086078

PATIENT
  Sex: Female
  Weight: 63.5 kg

DRUGS (8)
  1. CHANTIX [Suspect]
     Indication: SMOKING CESSATION THERAPY
     Dates: start: 20071002
  2. NEURONTIN [Concomitant]
     Indication: NEURALGIA
  3. MIRAPEX [Concomitant]
  4. PLAVIX [Concomitant]
  5. ACETYLSALICYLIC ACID [Concomitant]
  6. EFFEXOR [Concomitant]
  7. VYTORIN [Concomitant]
  8. IRON [Concomitant]

REACTIONS (1)
  - NIGHT SWEATS [None]
